FAERS Safety Report 7329923-0 (Version None)
Quarter: 2011Q1

REPORT INFORMATION
  Report Type: 
  Country: None (occurrence: None)
  Receive Date: 20110303
  Receipt Date: 20110218
  Transmission Date: 20110831
  Serious: Yes (Life-Threatening)
  Sender: FDA-Public Use
  Company Number: DE-MYLANLABS-2011S1003473

PATIENT
  Age: 49 Year
  Sex: Female

DRUGS (2)
  1. DOXEPIN HYDROCHLORIDE [Suspect]
     Indication: PRODUCT USED FOR UNKNOWN INDICATION
     Route: 048
  2. ALCOHOL [Suspect]
     Route: 048

REACTIONS (5)
  - INTENTIONAL OVERDOSE [None]
  - COMA [None]
  - BRONCHIAL INJURY [None]
  - SUICIDE ATTEMPT [None]
  - ASPIRATION [None]
